FAERS Safety Report 16211055 (Version 3)
Quarter: 2019Q2

REPORT INFORMATION
  Report Type: Spontaneous
  Country: JP (occurrence: JP)
  Receive Date: 20190418
  Receipt Date: 20190611
  Transmission Date: 20190711
  Serious: Yes (Hospitalization, Other)
  Sender: FDA-Public Use
  Company Number: JP-SA-2019SA011552

PATIENT
  Age: 71 Year
  Sex: Female

DRUGS (6)
  1. KEVZARA [Suspect]
     Active Substance: SARILUMAB
     Indication: RHEUMATOID ARTHRITIS
     Dosage: 200 MG, BIM
     Route: 058
     Dates: start: 20181122, end: 20181206
  2. SIMPONI [Concomitant]
     Active Substance: GOLIMUMAB
     Dosage: 100 MG,QM
     Route: 058
     Dates: start: 20181025, end: 20181122
  3. SIMPONI [Concomitant]
     Active Substance: GOLIMUMAB
     Indication: RHEUMATOID ARTHRITIS
     Dosage: 50 MG, QM
     Route: 058
     Dates: start: 20180823, end: 20181025
  4. KEVZARA [Suspect]
     Active Substance: SARILUMAB
     Dosage: UNK
     Route: 058
     Dates: start: 20190221
  5. LOXOPROFEN SODIUM [Suspect]
     Active Substance: LOXOPROFEN SODIUM
     Indication: RHEUMATOID ARTHRITIS
     Dosage: 60 UNK, BID
     Route: 048
     Dates: start: 20160805, end: 20181228
  6. METHOTREXATE. [Concomitant]
     Active Substance: METHOTREXATE
     Indication: RHEUMATOID ARTHRITIS
     Dosage: 8 MG, BIW
     Route: 048
     Dates: start: 20161020

REACTIONS (5)
  - Abdominal pain [Recovered/Resolved]
  - Small intestine ulcer [Recovered/Resolved]
  - Herpes zoster [Unknown]
  - Peritonitis [Recovered/Resolved]
  - Vomiting [Recovered/Resolved]

NARRATIVE: CASE EVENT DATE: 20181219
